FAERS Safety Report 8184779-1 (Version None)
Quarter: 2012Q1

REPORT INFORMATION
  Report Type: 
  Country: None (occurrence: None)
  Receive Date: 20120305
  Receipt Date: 20120305
  Transmission Date: 20120608
  Serious: No
  Sender: FDA-Public Use
  Company Number: None

PATIENT
  Age: 46 Year
  Sex: Male
  Weight: 70.306 kg

DRUGS (1)
  1. LEVAQUIN [Suspect]
     Indication: PROSTATITIS
     Dates: start: 20061102, end: 20061102

REACTIONS (5)
  - VISUAL IMPAIRMENT [None]
  - DIZZINESS [None]
  - ARTHRALGIA [None]
  - SKIN LESION [None]
  - MUSCULAR WEAKNESS [None]
